FAERS Safety Report 9270760 (Version 2)
Quarter: 2013Q2

REPORT INFORMATION
  Report Type: Spontaneous
  Country: US (occurrence: US)
  Receive Date: 20130503
  Receipt Date: 20130611
  Transmission Date: 20140414
  Serious: No
  Sender: FDA-Public Use
  Company Number: US-PFIZER INC-2013135119

PATIENT
  Age: 45 Year
  Sex: Female
  Weight: 54.4 kg

DRUGS (1)
  1. LEVOXYL [Suspect]
     Indication: HYPOTHYROIDISM
     Dosage: 0.75 MG, 1X/DAY
     Route: 048
     Dates: start: 201301, end: 201304

REACTIONS (3)
  - Libido decreased [Unknown]
  - Migraine [Unknown]
  - Drug effect decreased [Unknown]
